FAERS Safety Report 5912606-9 (Version None)
Quarter: 2008Q4

REPORT INFORMATION
  Report Type: 
  Country: None (occurrence: None)
  Receive Date: 20081008
  Receipt Date: 20080929
  Transmission Date: 20090506
  Serious: Yes (Life-Threatening, Other)
  Sender: FDA-Public Use
  Company Number: FR-ABBOTT-08P-056-0478966-00

PATIENT
  Age: 51 Year
  Sex: Female

DRUGS (6)
  1. HUMIRA [Suspect]
     Indication: DRUG USE FOR UNKNOWN INDICATION
     Route: 058
     Dates: start: 20080311
  2. CYCLOPHOSPHAMIDE [Suspect]
     Indication: DRUG USE FOR UNKNOWN INDICATION
     Route: 042
     Dates: start: 20070312, end: 20080107
  3. METHOTREXATE SODIUM [Suspect]
     Indication: DRUG USE FOR UNKNOWN INDICATION
     Route: 030
     Dates: start: 20060801
  4. INFLIXIMAB [Suspect]
     Indication: DRUG USE FOR UNKNOWN INDICATION
     Route: 042
     Dates: start: 20061001, end: 20070205
  5. MYCOPHENOLATE MOFETIL [Suspect]
     Indication: DRUG USE FOR UNKNOWN INDICATION
     Dosage: 500 MG DURING 5 DAYS, 1000 MG DURING 5 DAYS THEN 1500MG THEN 2000 MG
     Route: 048
     Dates: start: 20080107, end: 20080228
  6. PREDNISONE TAB [Concomitant]
     Indication: CEREBRAL SARCOIDOSIS
     Dates: start: 20060601

REACTIONS (5)
  - EPSTEIN-BARR VIRUS INFECTION [None]
  - LYMPHADENOPATHY [None]
  - NASAL CAVITY CANCER [None]
  - NASOPHARYNGEAL CANCER [None]
  - NEOPLASM MALIGNANT [None]
